FAERS Safety Report 18660880 (Version 1)
Quarter: 2020Q4

REPORT INFORMATION
  Report Type: Spontaneous
  Country: US (occurrence: US)
  Receive Date: 20201224
  Receipt Date: 20201224
  Transmission Date: 20210114
  Serious: Yes (Other)
  Sender: FDA-Public Use
  Company Number: US-VERTEX PHARMACEUTICALS-2020-025124

PATIENT
  Sex: Female
  Weight: 12.29 kg

DRUGS (6)
  1. PULMOZYME [Concomitant]
     Active Substance: DORNASE ALFA
  2. ALBUTEROL SULFATE. [Concomitant]
     Active Substance: ALBUTEROL SULFATE
     Dosage: 12K-38K-60 CAPSULE DR
  3. CREON [Concomitant]
     Active Substance: PANCRELIPASE AMYLASE\PANCRELIPASE LIPASE\PANCRELIPASE PROTEASE
     Dosage: 12K-38K-60 CAPSULE DR
  4. HYPERSAL [Concomitant]
     Active Substance: SODIUM CHLORIDE
     Dosage: VIAL-NEB
  5. ZYRTEC [Concomitant]
     Active Substance: CETIRIZINE HYDROCHLORIDE
     Dosage: CAPSULE
  6. KALYDECO [Suspect]
     Active Substance: IVACAFTOR
     Indication: CYSTIC FIBROSIS
     Dosage: 50 MG, BID (1 PACKET (50MG TOTAL) INTO 1 TEASPOONFUL (5ML) OF SOFT FOOD OR LIQUID AND TAKE BY MOUTH)
     Route: 048
     Dates: start: 20200308

REACTIONS (3)
  - Tonsillectomy [Unknown]
  - Adenoidectomy [Unknown]
  - Bronchoscopy [Unknown]

NARRATIVE: CASE EVENT DATE: 2020
